FAERS Safety Report 13491847 (Version 2)
Quarter: 2017Q2

REPORT INFORMATION
  Report Type: Spontaneous
  Country: US (occurrence: US)
  Receive Date: 20170427
  Receipt Date: 20170613
  Transmission Date: 20170830
  Serious: Yes (Other)
  Sender: FDA-Public Use
  Company Number: US-BAYER-2017-079483

PATIENT
  Age: 30 Year
  Sex: Female
  Weight: 176.87 kg

DRUGS (2)
  1. ZITHROMAX [Suspect]
     Active Substance: AZITHROMYCIN DIHYDRATE
     Indication: CONTRACEPTION
     Dosage: 250 MG, UNK
     Route: 048
     Dates: start: 20120413
  2. MIRENA [Suspect]
     Active Substance: LEVONORGESTREL
     Indication: CONTRACEPTION
     Dosage: 20 MCG/24HR, CONT
     Route: 015
     Dates: start: 20170421

REACTIONS (5)
  - Device deployment issue [None]
  - Medical device repositioning [None]
  - Uterine perforation [None]
  - Cervical dysplasia [None]
  - Obesity [None]

NARRATIVE: CASE EVENT DATE: 20170421
